FAERS Safety Report 26037725 (Version 1)
Quarter: 2025Q4

REPORT INFORMATION
  Report Type: Spontaneous
  Country: CN (occurrence: CN)
  Receive Date: 20251112
  Receipt Date: 20251112
  Transmission Date: 20260117
  Serious: Yes (Hospitalization)
  Sender: BEIGENE
  Company Number: CN-BEIGENE-BGN-2025-019338

PATIENT
  Age: 57 Year
  Weight: 57 kg

DRUGS (6)
  1. TISLELIZUMAB [Suspect]
     Active Substance: TISLELIZUMAB
     Indication: Colon cancer
     Dosage: 200 MILLIGRAM
  2. TISLELIZUMAB [Suspect]
     Active Substance: TISLELIZUMAB
     Dosage: 200 MILLIGRAM
     Route: 041
  3. TISLELIZUMAB [Suspect]
     Active Substance: TISLELIZUMAB
     Dosage: 200 MILLIGRAM
     Route: 041
  4. TISLELIZUMAB [Suspect]
     Active Substance: TISLELIZUMAB
     Dosage: 200 MILLIGRAM
  5. OXALIPLATIN [Suspect]
     Active Substance: OXALIPLATIN
     Indication: Colon cancer
     Dosage: 100 MILLIGRAM
     Route: 041
  6. OXALIPLATIN [Suspect]
     Active Substance: OXALIPLATIN
     Dosage: 100 MILLIGRAM

REACTIONS (4)
  - Upper gastrointestinal haemorrhage [Recovering/Resolving]
  - Melaena [Recovering/Resolving]
  - Haemoglobin decreased [Recovering/Resolving]
  - Red blood cell count decreased [Recovering/Resolving]
